FAERS Safety Report 16878045 (Version 9)
Quarter: 2025Q1

REPORT INFORMATION
  Report Type: Spontaneous
  Country: US (occurrence: US)
  Receive Date: 20191002
  Receipt Date: 20250113
  Transmission Date: 20250409
  Serious: Yes (Disabling, Other)
  Sender: REGENERON
  Company Number: US-REGENERON PHARMACEUTICALS, INC.-2019-55290

PATIENT
  Sex: Female

DRUGS (16)
  1. EYLEA [Suspect]
     Active Substance: AFLIBERCEPT
     Indication: Neovascular age-related macular degeneration
     Dosage: 2 MG, Q8W (FORMULATION: UNKNOWN)
     Route: 031
     Dates: start: 2018, end: 20191223
  2. EYLEA [Suspect]
     Active Substance: AFLIBERCEPT
     Indication: Choroidal neovascularisation
     Dosage: 2 MG, Q8W, LEFT EYE (FORMULATION: VIAL)
     Route: 031
     Dates: start: 201907, end: 201907
  3. EYLEA [Suspect]
     Active Substance: AFLIBERCEPT
     Dosage: 2 MG, Q8W, RIGHT EYE (FORMULATION: VIAL)
     Route: 031
     Dates: start: 20190827, end: 20190827
  4. EYLEA [Suspect]
     Active Substance: AFLIBERCEPT
     Dosage: 2 MG, Q8W, RIGHT EYE (FORMULATION: VIAL)
     Route: 031
     Dates: start: 20191022, end: 20191022
  5. EYLEA [Suspect]
     Active Substance: AFLIBERCEPT
     Dosage: 2 MG, Q8W, LEFT EYE (FORMULATION: VIAL)
     Route: 031
     Dates: start: 20191023, end: 20191023
  6. EYLEA [Suspect]
     Active Substance: AFLIBERCEPT
     Dosage: 2 MG, Q8W, RIGHT EYE, LAST DOSE (FORMULATION: PFS GERRESHEIMER)
     Route: 031
     Dates: start: 20191223, end: 20191223
  7. EYLEA [Suspect]
     Active Substance: AFLIBERCEPT
     Dosage: 2 MG, Q8W, AFTER THE EVENTS (FORMULATION: UNKNOWN)
     Route: 031
     Dates: start: 20200122
  8. LATANOPROST [Concomitant]
     Active Substance: LATANOPROST
     Indication: Dry eye
  9. LATANOPROST [Concomitant]
     Active Substance: LATANOPROST
     Dates: start: 20190912, end: 20190912
  10. METOPROLOL TARTRATE [Concomitant]
     Active Substance: METOPROLOL TARTRATE
     Indication: Product used for unknown indication
     Dosage: 100 MG, QD
  11. VERAPAMIL HCL [Concomitant]
     Active Substance: VERAPAMIL HYDROCHLORIDE
     Indication: Product used for unknown indication
     Dosage: 40 MG, QD
  12. VERAPAMIL HCL [Concomitant]
     Active Substance: VERAPAMIL HYDROCHLORIDE
  13. IRBESARTAN [Concomitant]
     Active Substance: IRBESARTAN
     Indication: Product used for unknown indication
     Dosage: 150 MG, BID
  14. PRAVASTATIN SODIUM [Concomitant]
     Active Substance: PRAVASTATIN SODIUM
     Indication: Product used for unknown indication
     Dosage: 40 MG, EVERY OTHER DAY
  15. NORTRIPTYLINE HYDROCHLORIDE [Concomitant]
     Active Substance: NORTRIPTYLINE HYDROCHLORIDE
     Indication: Product used for unknown indication
     Dosage: 25 MG, BID
  16. ALPRAZOLAM [Concomitant]
     Active Substance: ALPRAZOLAM
     Indication: Product used for unknown indication

REACTIONS (9)
  - Blindness [Unknown]
  - Type IIa hyperlipidaemia [Unknown]
  - Vitreous degeneration [Unknown]
  - Endophthalmitis [Recovered/Resolved]
  - Non-infectious endophthalmitis [Recovered/Resolved]
  - Eye inflammation [Unknown]
  - Eye irritation [Unknown]
  - Rotator cuff syndrome [Unknown]
  - Corneal oedema [Unknown]

NARRATIVE: CASE EVENT DATE: 20190101
